FAERS Safety Report 18747779 (Version 2)
Quarter: 2021Q1

REPORT INFORMATION
  Report Type: Spontaneous
  Country: US (occurrence: US)
  Receive Date: 20210115
  Receipt Date: 20210224
  Transmission Date: 20210419
  Serious: Yes (Other)
  Sender: FDA-Public Use
  Company Number: US-MYLANLABS-2021M1001233

PATIENT
  Sex: Male
  Weight: 163.3 kg

DRUGS (7)
  1. TADALAFIL. [Suspect]
     Active Substance: TADALAFIL
     Indication: ERECTILE DYSFUNCTION
     Dosage: UNK UNK, PRN (AS NEEDED)
     Route: 048
  2. MUSE [Suspect]
     Active Substance: ALPROSTADIL
     Indication: ERECTILE DYSFUNCTION
     Dosage: 500 MICROGRAM, PRN
     Route: 066
     Dates: start: 20201217
  3. ZYRTEC [Concomitant]
     Active Substance: CETIRIZINE HYDROCHLORIDE
     Indication: HYPERSENSITIVITY
     Dosage: UNK UNK, PRN
  4. MUSE [Suspect]
     Active Substance: ALPROSTADIL
     Dosage: 2 OR 3 TIMES PER WEEK
     Route: 066
  5. ANDROGEL [Concomitant]
     Active Substance: TESTOSTERONE
     Dosage: 4 PUMPS A DAY
  6. VITAMIN D                          /00107901/ [Concomitant]
     Active Substance: ERGOCALCIFEROL
     Dosage: UNK
  7. ATORVASTATIN [Concomitant]
     Active Substance: ATORVASTATIN
     Indication: BLOOD CHOLESTEROL ABNORMAL
     Dosage: UNK

REACTIONS (10)
  - Erectile dysfunction [Recovered/Resolved]
  - Device breakage [Recovered/Resolved]
  - Nasopharyngitis [Recovered/Resolved]
  - Extra dose administered [Recovered/Resolved]
  - Incorrect dose administered [Recovered/Resolved]
  - Wrong technique in product usage process [Recovered/Resolved]
  - Drug ineffective [Recovered/Resolved]
  - Sensory disturbance [Recovered/Resolved]
  - Therapeutic product effect incomplete [Recovered/Resolved]
  - Nasal congestion [Recovered/Resolved]
